FAERS Safety Report 24162346 (Version 1)
Quarter: 2024Q3

REPORT INFORMATION
  Report Type: Spontaneous
  Country: US (occurrence: None)
  Receive Date: 20240731
  Receipt Date: 20240731
  Transmission Date: 20241017
  Serious: Yes (Hospitalization)
  Sender: Public
  Company Number: None

PATIENT
  Age: 20 Year
  Sex: Female

DRUGS (1)
  1. COSENTYX [Suspect]
     Active Substance: SECUKINUMAB
     Indication: Ankylosing spondylitis
     Dosage: FREQUENCY : WEEKLY;?

REACTIONS (6)
  - Pleural effusion [None]
  - Oedema peripheral [None]
  - Oedema peripheral [None]
  - Oedema peripheral [None]
  - Pain [None]
  - Swelling [None]
